FAERS Safety Report 17758382 (Version 1)
Quarter: 2020Q2

REPORT INFORMATION
  Report Type: Spontaneous
  Country: NL (occurrence: NL)
  Receive Date: 20200507
  Receipt Date: 20200507
  Transmission Date: 20200714
  Serious: Yes (Life-Threatening)
  Sender: FDA-Public Use
  Company Number: NVSC2020NL088013

PATIENT
  Age: 60 Year
  Sex: Female
  Weight: 68.8 kg

DRUGS (1)
  1. SECUKINUMAB. [Suspect]
     Active Substance: SECUKINUMAB
     Indication: PRODUCT USED FOR UNKNOWN INDICATION
     Dosage: 150 MG, QMO
     Route: 042
     Dates: start: 20191029, end: 20191227

REACTIONS (1)
  - Non-small cell lung cancer [Not Recovered/Not Resolved]

NARRATIVE: CASE EVENT DATE: 20200218
